FAERS Safety Report 7422721-9 (Version None)
Quarter: 2011Q2

REPORT INFORMATION
  Report Type: 
  Country: None (occurrence: None)
  Receive Date: 20110414
  Receipt Date: 20110414
  Transmission Date: 20111010
  Serious: Yes (Life-Threatening, Hospitalization)
  Sender: FDA-Public Use
  Company Number: None

PATIENT
  Sex: Female
  Weight: 74.8435 kg

DRUGS (2)
  1. SINGULAIR [Suspect]
     Indication: SINUS DISORDER
     Dosage: 1 10MG TABLET 1 TIME-DAY SAMPLE #3761
     Dates: start: 20110301
  2. SINGULAIR [Suspect]
     Indication: SINUS DISORDER
     Dosage: 1 10MG TABLET 1 TIME-DAY SAMPLE #3761
     Dates: start: 20110302

REACTIONS (4)
  - COUGH [None]
  - INFLUENZA [None]
  - PNEUMONIA [None]
  - DIARRHOEA [None]
